FAERS Safety Report 23402662 (Version 2)
Quarter: 2024Q2

REPORT INFORMATION
  Report Type: Spontaneous
  Country: US (occurrence: US)
  Receive Date: 20240115
  Receipt Date: 20240404
  Transmission Date: 20240715
  Serious: Yes (Other)
  Sender: FDA-Public Use
  Company Number: US-Calliditas-2024CAL00036

PATIENT
  Age: 69 Year
  Sex: Female

DRUGS (1)
  1. TARPEYO [Suspect]
     Active Substance: BUDESONIDE
     Indication: IgA nephropathy
     Dosage: 16 MG (4 MG CAPSULES) ONCE DAILY
     Route: 048
     Dates: start: 20231111

REACTIONS (7)
  - Vision blurred [Unknown]
  - Lacrimation increased [Unknown]
  - Eye discharge [Unknown]
  - Lip swelling [Unknown]
  - Cataract [Unknown]
  - Swelling face [Unknown]
  - Condition aggravated [Unknown]
